FAERS Safety Report 8406272-0 (Version None)
Quarter: 2012Q2

REPORT INFORMATION
  Report Type: 
  Country: None (occurrence: None)
  Receive Date: 20120604
  Receipt Date: 20120529
  Transmission Date: 20120825
  Serious: Yes (Other)
  Sender: FDA-Public Use
  Company Number: PHHY2012ES023264

PATIENT
  Sex: Male

DRUGS (1)
  1. GLEEVEC [Suspect]
     Indication: MALIGNANT MELANOMA
     Dosage: UNK UKN, UNK

REACTIONS (2)
  - CEREBRAL DISORDER [None]
  - METASTASES TO CENTRAL NERVOUS SYSTEM [None]
